FAERS Safety Report 6825045-3 (Version None)
Quarter: 2010Q3

REPORT INFORMATION
  Report Type: 
  Country: None (occurrence: None)
  Receive Date: 20100708
  Receipt Date: 20061211
  Transmission Date: 20110219
  Serious: No
  Sender: FDA-Public Use
  Company Number: US-PFIZER INC-2006154453

PATIENT
  Sex: Female

DRUGS (2)
  1. CHANTIX [Suspect]
     Indication: SMOKING CESSATION THERAPY
     Dates: start: 20061001, end: 20060101
  2. LISINOPRIL [Concomitant]

REACTIONS (5)
  - DYSSTASIA [None]
  - HEADACHE [None]
  - MALAISE [None]
  - NAUSEA [None]
  - VERTIGO [None]
